FAERS Safety Report 7357756-8 (Version None)
Quarter: 2011Q1

REPORT INFORMATION
  Report Type: 
  Country: None (occurrence: None)
  Receive Date: 20110317
  Receipt Date: 20110311
  Transmission Date: 20110831
  Serious: Yes (Hospitalization, Other)
  Sender: FDA-Public Use
  Company Number: BR-US-EMD SERONO, INC.-7042723

PATIENT
  Sex: Female

DRUGS (3)
  1. LEXAPRO [Concomitant]
  2. REBIF [Suspect]
     Indication: RELAPSING-REMITTING MULTIPLE SCLEROSIS
     Dates: start: 20061201
  3. GYNERA [Concomitant]

REACTIONS (6)
  - PAPILLOMA VIRAL INFECTION [None]
  - BODY TEMPERATURE FLUCTUATION [None]
  - HYPERSENSITIVITY [None]
  - IRRITABILITY [None]
  - CENTRAL NERVOUS SYSTEM LESION [None]
  - CERVICAL DYSPLASIA [None]
